FAERS Safety Report 7017967-8 (Version None)
Quarter: 2010Q3

REPORT INFORMATION
  Report Type: 
  Country: None (occurrence: None)
  Receive Date: 20100927
  Receipt Date: 20100927
  Transmission Date: 20110219
  Serious: Yes (Hospitalization)
  Sender: FDA-Public Use
  Company Number: None

PATIENT
  Age: 55 Year
  Sex: Male
  Weight: 124.2 kg

DRUGS (2)
  1. LISINOPRIL [Suspect]
     Indication: DIABETES MELLITUS
     Dosage: 20 MG EVERY DAY PO
     Route: 048
     Dates: start: 20091014, end: 20100826
  2. LISINOPRIL [Suspect]
     Indication: HYPERTENSION
     Dosage: 20 MG EVERY DAY PO
     Route: 048
     Dates: start: 20091014, end: 20100826

REACTIONS (4)
  - ANGIOEDEMA [None]
  - DYSPHAGIA [None]
  - THROAT IRRITATION [None]
  - TONGUE OEDEMA [None]
